FAERS Safety Report 24451501 (Version 1)
Quarter: 2024Q4

REPORT INFORMATION
  Report Type: Other
  Country: CA (occurrence: CA)
  Receive Date: 20241017
  Receipt Date: 20241017
  Transmission Date: 20250115
  Serious: Yes (Hospitalization, Other)
  Sender: PFIZER
  Company Number: CA-PFIZER INC-202400278156

PATIENT
  Age: 13 Year
  Sex: Female

DRUGS (3)
  1. INFLIXIMAB [Suspect]
     Active Substance: INFLIXIMAB
     Indication: Colitis ulcerative
     Dosage: UNK
     Route: 065
  2. RITUXIMAB [Suspect]
     Active Substance: RITUXIMAB
     Indication: Epstein-Barr virus infection
     Dosage: UNK
     Route: 065
  3. TOFACITINIB [Concomitant]
     Active Substance: TOFACITINIB
     Indication: Colitis
     Dosage: UNK
     Route: 065

REACTIONS (6)
  - Colitis ulcerative [Unknown]
  - Drug effective for unapproved indication [Unknown]
  - Off label use [Unknown]
  - Off label use [Unknown]
  - Infectious mononucleosis [Unknown]
  - Therapy non-responder [Unknown]
